FAERS Safety Report 10741461 (Version 4)
Quarter: 2015Q1

REPORT INFORMATION
  Report Type: Spontaneous
  Country: US (occurrence: None)
  Receive Date: 20150123
  Receipt Date: 20150223
  Transmission Date: 20150721
  Serious: Yes (Hospitalization, Other)
  Sender: FDA-Public Use
  Company Number: ADR-2015-00141

PATIENT
  Age: 25 Year
  Sex: Male

DRUGS (2)
  1. COMPOUNDED BACLOFEN INTRATHECAL 2000 MCG/ML [Suspect]
     Active Substance: BACLOFEN
     Indication: MUSCLE SPASTICITY
  2. LIORESAL [Suspect]
     Active Substance: BACLOFEN
     Indication: MUSCLE SPASTICITY

REACTIONS (11)
  - Pneumonia [None]
  - Pneumonia aspiration [None]
  - Hypotonia [None]
  - Device damage [None]
  - Nephrolithiasis [None]
  - Device leakage [None]
  - Condition aggravated [None]
  - Hypertonia [None]
  - Grimacing [None]
  - Device connection issue [None]
  - Muscle spasms [None]
